FAERS Safety Report 14258897 (Version 1)
Quarter: 2017Q4

REPORT INFORMATION
  Report Type: Spontaneous
  Country: US (occurrence: None)
  Receive Date: 20171207
  Receipt Date: 20171207
  Transmission Date: 20180321
  Serious: Yes (Death, Hospitalization)
  Sender: FDA-Public Use
  Company Number: None

PATIENT
  Age: 19 Year
  Sex: Male
  Weight: 142.9 kg

DRUGS (6)
  1. PREDNISONE. [Suspect]
     Active Substance: PREDNISONE
     Dates: end: 20160310
  2. VINCRISTINE SULFATE. [Suspect]
     Active Substance: VINCRISTINE SULFATE
     Dates: end: 20170304
  3. DAUNORUBICIN [Suspect]
     Active Substance: DAUNORUBICIN
     Dates: end: 20160304
  4. ONCASPAR [Suspect]
     Active Substance: PEGASPARGASE
     Dates: end: 20160215
  5. METHOTREXATE. [Suspect]
     Active Substance: METHOTREXATE
     Dates: end: 20160311
  6. CYTARABINE. [Suspect]
     Active Substance: CYTARABINE
     Dates: end: 20170212

REACTIONS (9)
  - Diarrhoea [None]
  - Malaise [None]
  - Respiratory failure [None]
  - Adrenal insufficiency [None]
  - Vomiting [None]
  - Treatment noncompliance [None]
  - Pneumocystis test positive [None]
  - Multiple organ dysfunction syndrome [None]
  - Nausea [None]

NARRATIVE: CASE EVENT DATE: 20171107
